FAERS Safety Report 4612927-6 (Version None)
Quarter: 2005Q1

REPORT INFORMATION
  Report Type: 
  Country: None (occurrence: None)
  Receive Date: 20050318
  Receipt Date: 20050221
  Transmission Date: 20050727
  Serious: Yes (Death)
  Sender: FDA-Public Use
  Company Number: RO-ROCHE-395997

PATIENT
  Age: 52 Year
  Sex: Male

DRUGS (4)
  1. PEGASYS [Suspect]
     Route: 058
     Dates: start: 20041206, end: 20041228
  2. COPEGUS [Suspect]
     Route: 048
     Dates: start: 20041206, end: 20041220
  3. ACTRAPID [Concomitant]
     Indication: DIABETES MELLITUS
     Dosage: 24 - 20 - 24 UNITS.
     Dates: start: 20010615
  4. LANTUS [Concomitant]
     Indication: DIABETES MELLITUS
     Dates: start: 20010615

REACTIONS (6)
  - ANAEMIA [None]
  - COMA [None]
  - CONDITION AGGRAVATED [None]
  - DIABETES MELLITUS [None]
  - LEUKOPENIA [None]
  - THROMBOCYTOPENIA [None]
